FAERS Safety Report 7758541-5 (Version None)
Quarter: 2011Q3

REPORT INFORMATION
  Report Type: 
  Country: None (occurrence: None)
  Receive Date: 20110914
  Receipt Date: 20110902
  Transmission Date: 20111222
  Serious: Yes (Other)
  Sender: FDA-Public Use
  Company Number: 2011SP042444

PATIENT
  Age: 56 Year
  Sex: Male

DRUGS (1)
  1. TICE BCG [Suspect]
     Indication: BLADDER CANCER STAGE I, WITHOUT CANCER IN SITU
     Dosage: ;INVES

REACTIONS (19)
  - OLIGURIA [None]
  - HEPATORENAL FAILURE [None]
  - HAEMODIALYSIS [None]
  - LUNG INFILTRATION [None]
  - TUBULOINTERSTITIAL NEPHRITIS [None]
  - HYPERSENSITIVITY [None]
  - MULTI-ORGAN FAILURE [None]
  - RESPIRATORY FAILURE [None]
  - URETERIC STENOSIS [None]
  - GRANULOMATOUS LIVER DISEASE [None]
  - HYPOXIA [None]
  - HYDROURETER [None]
  - CYSTITIS [None]
  - MYALGIA [None]
  - PNEUMONITIS [None]
  - PYREXIA [None]
  - HYPOTENSION [None]
  - JAUNDICE [None]
  - HEPATOSPLENOMEGALY [None]
